FAERS Safety Report 19923965 (Version 2)
Quarter: 2021Q4

REPORT INFORMATION
  Report Type: Spontaneous
  Country: FR (occurrence: FR)
  Receive Date: 20211006
  Receipt Date: 20211013
  Transmission Date: 20220303
  Serious: Yes (Death, Other)
  Sender: FDA-Public Use
  Company Number: None

PATIENT

DRUGS (4)
  1. BUPRENORPHINE [Suspect]
     Active Substance: BUPRENORPHINE
     Indication: Product used for unknown indication
     Dosage: 16 MILLIGRAM, QD (UPTO 16 MG/DAY)
     Route: 045
     Dates: start: 2012, end: 20201212
  2. BUPRENORPHINE [Suspect]
     Active Substance: BUPRENORPHINE
     Dosage: UNK
     Route: 042
     Dates: start: 2012, end: 20201212
  3. TOBACCO LEAF [Suspect]
     Active Substance: TOBACCO LEAF
     Indication: Product used for unknown indication
     Dosage: 10 CIG/DAY
     Route: 055
     Dates: start: 1993, end: 20201212
  4. ALCOHOL [Suspect]
     Active Substance: ALCOHOL
     Indication: Product used for unknown indication
     Dosage: UPTO 30U /D
     Route: 048
     Dates: start: 1993, end: 20201212

REACTIONS (11)
  - Ascites [Fatal]
  - Cirrhosis alcoholic [Fatal]
  - Drug withdrawal syndrome [Fatal]
  - Haematemesis [Fatal]
  - Hypokalaemia [Fatal]
  - Jaundice [Fatal]
  - Pulmonary oedema [Fatal]
  - Tachycardia [Fatal]
  - Hepatic failure [Fatal]
  - Drug abuse [Fatal]
  - Product use issue [Recovered/Resolved]

NARRATIVE: CASE EVENT DATE: 20120101
